FAERS Safety Report 6252857-X (Version None)
Quarter: 2009Q2

REPORT INFORMATION
  Report Type: 
  Country: None (occurrence: None)
  Receive Date: 20090629
  Receipt Date: 20090629
  Transmission Date: 20091009
  Serious: Yes (Hospitalization)
  Sender: FDA-Public Use
  Company Number: None

PATIENT
  Sex: Female
  Weight: 54.4316 kg

DRUGS (1)
  1. BUDEPRION XL [Suspect]
     Indication: MAJOR DEPRESSION
     Dosage: 450 MG Q AM ORAL
     Route: 048
     Dates: start: 20090101, end: 20090531

REACTIONS (1)
  - GRAND MAL CONVULSION [None]
